FAERS Safety Report 5786128-2 (Version None)
Quarter: 2008Q2

REPORT INFORMATION
  Report Type: 
  Country: None (occurrence: None)
  Receive Date: 20080624
  Receipt Date: 20080616
  Transmission Date: 20081010
  Serious: Yes (Hospitalization)
  Sender: FDA-Public Use
  Company Number: KR-ABBOTT-08P-090-0458154-00

PATIENT
  Sex: Male

DRUGS (8)
  1. ZEMPLAR [Suspect]
     Indication: HYPERPARATHYROIDISM SECONDARY
     Route: 042
     Dates: end: 20080429
  2. NEPHVITA [Concomitant]
     Indication: VITAMIN SUPPLEMENTATION
     Route: 048
  3. CALCIUM ACETATE [Concomitant]
     Indication: BLOOD PHOSPHORUS ABNORMAL
     Route: 048
  4. CALCITRIOL [Concomitant]
     Indication: VITAMIN D DECREASED
     Route: 048
  5. ASPIRIN [Concomitant]
     Indication: THROMBOSIS PROPHYLAXIS
  6. ENALAPRIL MALEATE [Concomitant]
     Indication: BLOOD PRESSURE MANAGEMENT
  7. ORODIPINE [Concomitant]
     Indication: BLOOD PRESSURE MANAGEMENT
     Route: 048
  8. FASTIR [Concomitant]
     Indication: DIABETES MELLITUS
     Route: 048

REACTIONS (1)
  - STEAL SYNDROME [None]
